FAERS Safety Report 4382616-4 (Version None)
Quarter: 2004Q2

REPORT INFORMATION
  Report Type: 
  Country: None (occurrence: None)
  Receive Date: 20040617
  Receipt Date: 20040603
  Transmission Date: 20050107
  Serious: Yes (Hospitalization)
  Sender: FDA-Public Use
  Company Number: 2004218890VN

PATIENT
  Age: 35 Year
  Sex: Female

DRUGS (1)
  1. TRELSTAR DEPOT [Suspect]
     Indication: UTERINE LEIOMYOMA
     Dosage: 3.75 MG, INTRAMUSCULAR
     Route: 030

REACTIONS (3)
  - ANAEMIA [None]
  - ANXIETY [None]
  - UTERINE HAEMORRHAGE [None]
